FAERS Safety Report 9133998 (Version 2)
Quarter: 2013Q1

REPORT INFORMATION
  Report Type: Report from Study
  Country: DE (occurrence: DE)
  Receive Date: 20130304
  Receipt Date: 20130318
  Transmission Date: 20140127
  Serious: Yes (Hospitalization)
  Sender: FDA-Public Use
  Company Number: DE-AMGEN-DEUSP2013014348

PATIENT
  Age: 18 Year
  Sex: Female
  Weight: 41 kg

DRUGS (1)
  1. ETANERCEPT [Suspect]
     Indication: PSORIASIS
     Dosage: 50 MG, QWK
     Route: 058
     Dates: start: 2009, end: 2013

REACTIONS (1)
  - Anorexia nervosa [Not Recovered/Not Resolved]
